FAERS Safety Report 5213193-3 (Version None)
Quarter: 2007Q1

REPORT INFORMATION
  Report Type: 
  Country: None (occurrence: None)
  Receive Date: 20070119
  Receipt Date: 20070108
  Transmission Date: 20070707
  Serious: Yes (Death, Life-Threatening)
  Sender: FDA-Public Use
  Company Number: FR-GLAXOSMITHKLINE-B0453791A

PATIENT
  Age: 61 Year
  Sex: Male

DRUGS (8)
  1. PAROXETINE HCL [Suspect]
     Route: 048
     Dates: end: 20061010
  2. TEMESTA [Suspect]
     Route: 048
     Dates: end: 20061010
  3. EFFEXOR [Suspect]
     Route: 048
     Dates: end: 20061010
  4. MITOTANE [Suspect]
     Route: 048
     Dates: end: 20061010
  5. DAFALGAN [Concomitant]
     Route: 065
  6. HEXAQUINE [Concomitant]
     Route: 065
  7. HYDROCORTISONE [Concomitant]
     Route: 065
  8. FLUDROCORTISONE [Concomitant]
     Route: 065

REACTIONS (16)
  - ANAEMIA [None]
  - BLOOD PRESSURE SYSTOLIC INCREASED [None]
  - CARDIAC ARREST [None]
  - COMA [None]
  - DEPRESSED LEVEL OF CONSCIOUSNESS [None]
  - HYPOXIA [None]
  - INTENTIONAL OVERDOSE [None]
  - LUNG DISORDER [None]
  - MULTIPLE DRUG OVERDOSE INTENTIONAL [None]
  - OBSTRUCTIVE AIRWAYS DISORDER [None]
  - PIGMENTATION DISORDER [None]
  - PLEURAL EFFUSION [None]
  - PYOTHORAX [None]
  - RENAL FAILURE [None]
  - SEPTIC SHOCK [None]
  - SUICIDE ATTEMPT [None]
